FAERS Safety Report 5285871-1 (Version None)
Quarter: 2007Q1

REPORT INFORMATION
  Report Type: 
  Country: None (occurrence: None)
  Receive Date: 20070328
  Receipt Date: 20070320
  Transmission Date: 20070707
  Serious: Yes (Death, Hospitalization, Other)
  Sender: FDA-Public Use
  Company Number: 163-20785-07031261

PATIENT
  Age: 67 Year
  Sex: Male

DRUGS (6)
  1. THALOMID [Suspect]
     Indication: MULTIPLE MYELOMA
     Dosage: 200 MG, 1 IN 1 D, ORAL
     Route: 048
     Dates: start: 20061103, end: 20061226
  2. DECADRON [Concomitant]
  3. AREDIA [Concomitant]
  4. UNIRECTIC (PRIMOX PLUS) [Concomitant]
  5. PROMETHAZINE [Concomitant]
  6. RANITIDINE [Concomitant]

REACTIONS (14)
  - ACIDOSIS [None]
  - BACTERIA STOOL IDENTIFIED [None]
  - BLOOD CALCIUM INCREASED [None]
  - BLOOD UREA INCREASED [None]
  - CLOSTRIDIAL INFECTION [None]
  - COLITIS ISCHAEMIC [None]
  - DIARRHOEA [None]
  - HYPOTENSION [None]
  - MESENTERIC ARTERY THROMBOSIS [None]
  - MULTI-ORGAN FAILURE [None]
  - NAUSEA [None]
  - NO THERAPEUTIC RESPONSE [None]
  - TACHYARRHYTHMIA [None]
  - VOMITING [None]
